FAERS Safety Report 17683869 (Version 3)
Quarter: 2020Q2

REPORT INFORMATION
  Report Type: Spontaneous
  Country: SK (occurrence: SK)
  Receive Date: 20200420
  Receipt Date: 20200525
  Transmission Date: 20200714
  Serious: Yes (Other)
  Sender: FDA-Public Use
  Company Number: NVSC2020SK104580

PATIENT
  Age: 59 Year
  Sex: Male

DRUGS (1)
  1. CIPROFLOXACIN. [Suspect]
     Active Substance: CIPROFLOXACIN
     Indication: PNEUMONIA
     Route: 065

REACTIONS (8)
  - Aspergillus infection [Unknown]
  - Normocytic anaemia [Unknown]
  - Lung infiltration [Unknown]
  - Lymphadenopathy mediastinal [Unknown]
  - Thrombocytosis [Unknown]
  - Obstructive airways disorder [Unknown]
  - Blood immunoglobulin E increased [Unknown]
  - Bronchitis chronic [Unknown]
